FAERS Safety Report 7514779-3 (Version None)
Quarter: 2011Q2

REPORT INFORMATION
  Report Type: 
  Country: None (occurrence: None)
  Receive Date: 20110601
  Receipt Date: 20110524
  Transmission Date: 20111010
  Serious: Yes (Other)
  Sender: FDA-Public Use
  Company Number: US-US-EMD SERONO, INC.-7008071

PATIENT
  Sex: Female

DRUGS (3)
  1. TIZANIDINE HCL [Concomitant]
  2. REBIF [Suspect]
     Indication: MULTIPLE SCLEROSIS
     Route: 058
     Dates: start: 20100211
  3. GABAPENTIN [Concomitant]
     Indication: DYSPHAGIA

REACTIONS (4)
  - DIZZINESS [None]
  - MULTIPLE SCLEROSIS RELAPSE [None]
  - MENORRHAGIA [None]
  - INJECTION SITE PAIN [None]
